FAERS Safety Report 16015777 (Version 1)
Quarter: 2019Q1

REPORT INFORMATION
  Report Type: Spontaneous
  Country: US (occurrence: US)
  Receive Date: 20190228
  Receipt Date: 20190228
  Transmission Date: 20190418
  Serious: Yes (Other)
  Sender: FDA-Public Use
  Company Number: US-AMGEN-USASP2019029220

PATIENT
  Sex: Female

DRUGS (4)
  1. VITAMIN B [Concomitant]
     Active Substance: VITAMIN B
     Dosage: UNK
  2. NATURE-THROID [Concomitant]
     Active Substance: THYROID, PORCINE
     Indication: HYPOTHYROIDISM
     Dosage: UNK
  3. VITAMIN D3 [Concomitant]
     Active Substance: CHOLECALCIFEROL
     Dosage: 50000 UNIT, QWK
  4. PROLIA [Suspect]
     Active Substance: DENOSUMAB
     Indication: OSTEOPOROSIS POSTMENOPAUSAL
     Dosage: 60 MG, Q6MO
     Route: 065

REACTIONS (14)
  - Sleep disorder [Unknown]
  - Hypertension [Unknown]
  - Listless [Unknown]
  - Gastrooesophageal reflux disease [Unknown]
  - Blood cholesterol increased [Unknown]
  - Glaucoma [Unknown]
  - Dental caries [Unknown]
  - Lethargy [Unknown]
  - Gait disturbance [Unknown]
  - Fatigue [Unknown]
  - Gingival bleeding [Unknown]
  - Weight increased [Unknown]
  - Alopecia [Unknown]
  - Body height decreased [Unknown]

NARRATIVE: CASE EVENT DATE: 2017
